FAERS Safety Report 6843769-9 (Version None)
Quarter: 2010Q3

REPORT INFORMATION
  Report Type: 
  Country: None (occurrence: None)
  Receive Date: 20100714
  Receipt Date: 20100714
  Transmission Date: 20110219
  Serious: Yes (Other)
  Sender: FDA-Public Use
  Company Number: None

PATIENT
  Sex: Female

DRUGS (2)
  1. CEFTRIAXONE [Suspect]
     Indication: ARTHRITIS BACTERIAL
     Dosage: 20 GM IV DAILY
     Route: 042
     Dates: start: 20100708, end: 20100713
  2. CEFTRIAXONE [Suspect]

REACTIONS (2)
  - RASH [None]
  - URTICARIA [None]
